FAERS Safety Report 5197261-0 (Version None)
Quarter: 2006Q4

REPORT INFORMATION
  Report Type: 
  Country: None (occurrence: None)
  Receive Date: 20061228
  Receipt Date: 20061219
  Transmission Date: 20070319
  Serious: Yes (Hospitalization)
  Sender: FDA-Public Use
  Company Number: 234179

PATIENT
  Age: 87 Year
  Sex: Female

DRUGS (2)
  1. MABTHERA (RITUXIMAB )CONC FOR SOLUTION FOR INFUSION [Suspect]
     Indication: LYMPHOMA
     Dosage: INTRAVENOUS
     Route: 042
  2. INFUSION (INTRAVENOUS SOLUTION NOS) [Concomitant]

REACTIONS (1)
  - PULMONARY OEDEMA [None]
